FAERS Safety Report 6674533-1 (Version None)
Quarter: 2010Q2

REPORT INFORMATION
  Report Type: 
  Country: None (occurrence: None)
  Receive Date: 20100409
  Receipt Date: 20100331
  Transmission Date: 20101027
  Serious: Yes (Hospitalization)
  Sender: FDA-Public Use
  Company Number: PHHY2010US20688

PATIENT
  Age: 9 Year
  Sex: Female

DRUGS (14)
  1. MYFORTIC [Suspect]
     Dosage: 360 MG, DAILY
     Dates: start: 20090121
  2. ENALAPRIL MALEATE [Concomitant]
     Indication: BLOOD PRESSURE
     Dosage: 5 MG DAILY
     Route: 048
     Dates: start: 20011015
  3. HECTOROL [Concomitant]
     Indication: BLOOD IRON DECREASED
     Dosage: 2 UG, DAILY
     Dates: start: 20011015
  4. NIFEDIPINE [Concomitant]
     Indication: HYPERTENSION
     Dosage: 10 MG AS NEEDED
     Dates: start: 20090709
  5. NU-IRON 150 [Concomitant]
     Indication: BLOOD IRON DECREASED
     Dosage: 300 MG, DAILY
     Route: 048
     Dates: start: 20090709
  6. LASIX [Concomitant]
     Indication: OEDEMA
     Dosage: 20 MG, DAILY
     Route: 048
     Dates: start: 20071003
  7. PREDNISONE TAB [Concomitant]
     Indication: IMMUNOSUPPRESSION
     Dosage: 5 MG, DAILY
     Route: 048
     Dates: start: 20090820
  8. EPOGEN [Concomitant]
     Indication: ANAEMIA
     Dosage: 4000 U, UNK
     Dates: start: 20011015
  9. LIPITOR [Concomitant]
     Dosage: 20 MG, DAILY
     Route: 048
     Dates: start: 20011015
  10. PRILOSEC [Concomitant]
     Indication: GASTROOESOPHAGEAL REFLUX DISEASE
     Dosage: 20 MG, DAILY
     Dates: start: 20080626
  11. SAIZEN [Concomitant]
     Dosage: 8.8 MG, DAILY
     Dates: start: 20090215
  12. PROGRAF [Concomitant]
     Indication: IMMUNOSUPPRESSION
     Dosage: 0.5 MG, DAILY
     Route: 048
     Dates: start: 20071003
  13. ASPIRIN [Concomitant]
     Indication: CARDIAC DISORDER
     Dosage: 81 MG, DAILY
     Dates: start: 20100111
  14. RENVELA [Concomitant]
     Indication: BLOOD PHOSPHORUS INCREASED
     Dosage: 2 CARBONATE 800 MG AS NEEDED
     Dates: start: 20100316

REACTIONS (3)
  - GASTRITIS [None]
  - H1N1 INFLUENZA [None]
  - TRANSPLANT REJECTION [None]
